FAERS Safety Report 4493389-9 (Version None)
Quarter: 2004Q4

REPORT INFORMATION
  Report Type: 
  Country: None (occurrence: None)
  Receive Date: 20041102
  Receipt Date: 20041021
  Transmission Date: 20050328
  Serious: Yes (Other)
  Sender: FDA-Public Use
  Company Number: B0348895A

PATIENT
  Age: 58 Year
  Sex: Female

DRUGS (1)
  1. HYCAMTIN [Suspect]
     Indication: OVARIAN CANCER
     Dosage: SEE DOSAGE TEXT/ INTRAVENO
     Route: 042

REACTIONS (10)
  - BONE MARROW DEPRESSION [None]
  - FEBRILE NEUTROPENIA [None]
  - HAEMODIALYSIS [None]
  - LARGE INTESTINE PERFORATION [None]
  - NAUSEA [None]
  - NEUTROPENIA [None]
  - PLEURAL EFFUSION [None]
  - RENAL FAILURE [None]
  - THROMBOCYTOPENIA [None]
  - VOMITING [None]
